FAERS Safety Report 12907936 (Version 1)
Quarter: 2016Q4

REPORT INFORMATION
  Report Type: Spontaneous
  Country: US (occurrence: US)
  Receive Date: 20161102
  Receipt Date: 20161102
  Transmission Date: 20170207
  Serious: Yes (Disabling)
  Sender: FDA-Public Use
  Company Number: None

PATIENT
  Age: 95 Year
  Sex: Male
  Weight: 75.15 kg

DRUGS (7)
  1. CIPROFLOXACIN. [Suspect]
     Active Substance: CIPROFLOXACIN
     Indication: URINARY TRACT INFECTION
     Dosage: ?          QUANTITY:3 INJECTION(S);?
     Route: 042
     Dates: start: 20161030, end: 20161031
  2. FOLIC ACID. [Concomitant]
     Active Substance: FOLIC ACID
  3. PROCRIT [Concomitant]
     Active Substance: ERYTHROPOIETIN
  4. VITAMIN B12 [Concomitant]
     Active Substance: CYANOCOBALAMIN
  5. OCUVITE [Concomitant]
     Active Substance: VITAMINS
  6. METOPROLOL XL [Concomitant]
     Active Substance: METOPROLOL SUCCINATE
  7. VITAMIN D [Concomitant]
     Active Substance: CHOLECALCIFEROL

REACTIONS (1)
  - Asthenia [None]

NARRATIVE: CASE EVENT DATE: 20161031
